FAERS Safety Report 12573649 (Version 11)
Quarter: 2018Q3

REPORT INFORMATION
  Report Type: Report from Study
  Country: CA (occurrence: CA)
  Receive Date: 20160720
  Receipt Date: 20180715
  Transmission Date: 20181010
  Serious: Yes (Other)
  Sender: FDA-Public Use
  Company Number: PHHY2011CA02257

PATIENT
  Age: 59 Year
  Sex: Female

DRUGS (3)
  1. SANDOSTATIN LAR DEPOT [Suspect]
     Active Substance: OCTREOTIDE ACETATE
     Dosage: 20 MG, QMO (EVERY 4 WEEKS)
     Route: 030
     Dates: start: 20130912
  2. SANDOSTATIN LAR DEPOT [Suspect]
     Active Substance: OCTREOTIDE ACETATE
     Dosage: 20 MG, QMO (EVERY 4 WEEKS)
     Route: 030
     Dates: start: 20120808
  3. SANDOSTATIN LAR DEPOT [Suspect]
     Active Substance: OCTREOTIDE ACETATE
     Indication: CARCINOID TUMOUR
     Dosage: 20 MG, QMO (EVERY 4 WEEKS)
     Route: 030
     Dates: start: 20100921

REACTIONS (19)
  - Foot fracture [Recovering/Resolving]
  - Vomiting [Recovered/Resolved]
  - Fall [Unknown]
  - Blood pressure decreased [Unknown]
  - Wrist fracture [Unknown]
  - Limb injury [Unknown]
  - Pain in extremity [Unknown]
  - Labyrinthitis [Recovering/Resolving]
  - Ankle fracture [Unknown]
  - Swelling [Recovering/Resolving]
  - Pain of skin [Unknown]
  - Dizziness [Recovered/Resolved]
  - Syncope [Unknown]
  - Injection site haemorrhage [Unknown]
  - Injection site pain [Unknown]
  - Rheumatoid arthritis [Recovering/Resolving]
  - Blood pressure diastolic decreased [Unknown]
  - Contusion [Unknown]
  - Nausea [Recovered/Resolved]

NARRATIVE: CASE EVENT DATE: 20101213
